FAERS Safety Report 7767328-9 (Version None)
Quarter: 2011Q3

REPORT INFORMATION
  Report Type: 
  Country: None (occurrence: None)
  Receive Date: 20110922
  Receipt Date: 20100803
  Transmission Date: 20111222
  Serious: No
  Sender: FDA-Public Use
  Company Number: US-ASTRAZENECA-2010SE36342

PATIENT
  Age: 10004 Day
  Sex: Male
  Weight: 89.8 kg

DRUGS (3)
  1. SEROQUEL XR [Suspect]
     Indication: ANXIETY
     Route: 048
     Dates: start: 20100701, end: 20100702
  2. SEROQUEL XR [Suspect]
     Indication: DEPRESSION
     Route: 048
     Dates: start: 20100701, end: 20100702
  3. WELLBUTRIN SR [Concomitant]
     Indication: DEPRESSION

REACTIONS (3)
  - FATIGUE [None]
  - SOMNOLENCE [None]
  - HYPERSOMNIA [None]
